FAERS Safety Report 25278967 (Version 1)
Quarter: 2025Q2

REPORT INFORMATION
  Report Type: Spontaneous
  Country: BR (occurrence: BR)
  Receive Date: 20250507
  Receipt Date: 20250507
  Transmission Date: 20250717
  Serious: Yes (Hospitalization, Other)
  Sender: TAKEDA
  Company Number: BR-LUNDBECK-DKLU4013939

PATIENT
  Sex: Female

DRUGS (2)
  1. VORTIOXETINE [Suspect]
     Active Substance: VORTIOXETINE
     Indication: Product used for unknown indication
  2. VORTIOXETINE [Suspect]
     Active Substance: VORTIOXETINE

REACTIONS (9)
  - Colitis ulcerative [Unknown]
  - Constipation [Unknown]
  - Visual impairment [Unknown]
  - Abdominal pain [Unknown]
  - Dyspepsia [Unknown]
  - Dizziness [Unknown]
  - Headache [Unknown]
  - Nausea [Unknown]
  - Vomiting [Unknown]
